FAERS Safety Report 4660637-1 (Version None)
Quarter: 2005Q2

REPORT INFORMATION
  Report Type: 
  Country: None (occurrence: None)
  Receive Date: 20050512
  Receipt Date: 20050504
  Transmission Date: 20051028
  Serious: Yes (Hospitalization)
  Sender: FDA-Public Use
  Company Number: US-JNJFOC-20050501545

PATIENT
  Sex: Female
  Weight: 99.79 kg

DRUGS (8)
  1. REMICADE [Suspect]
     Indication: RHEUMATOID ARTHRITIS
     Route: 042
  2. ENBREL [Suspect]
     Indication: RHEUMATOID ARTHRITIS
  3. HUMIRA [Suspect]
     Indication: RHEUMATOID ARTHRITIS
  4. VICODIN [Concomitant]
  5. VICODIN [Concomitant]
     Indication: RHEUMATOID ARTHRITIS
  6. MEDROL [Concomitant]
     Indication: RHEUMATOID ARTHRITIS
  7. DIURETIC [Concomitant]
  8. ANTIHISTAMINE [Concomitant]

REACTIONS (1)
  - HOSPITALISATION [None]
